FAERS Safety Report 15022729 (Version 1)
Quarter: 2018Q2

REPORT INFORMATION
  Report Type: Spontaneous
  Country: US (occurrence: US)
  Receive Date: 20180618
  Receipt Date: 20180618
  Transmission Date: 20180711
  Serious: No
  Sender: FDA-Public Use
  Company Number: US-MYLANLABS-2018M1034804

PATIENT
  Age: 30 Year
  Sex: Female

DRUGS (3)
  1. LEVONORGESTREL AND ETHINYL ESTRADIOL TABLETS, USP [Suspect]
     Active Substance: ETHINYL ESTRADIOL\LEVONORGESTREL
     Indication: OVARIAN DISORDER
     Dosage: UNK
     Route: 062
     Dates: start: 20180506
  2. TOPIRAMATE. [Concomitant]
     Active Substance: TOPIRAMATE
     Indication: MIGRAINE
     Dosage: 50 MG, QD
  3. VITAMINS                           /00067501/ [Concomitant]
     Active Substance: VITAMINS

REACTIONS (2)
  - Product use in unapproved indication [Not Recovered/Not Resolved]
  - Diarrhoea [Not Recovered/Not Resolved]

NARRATIVE: CASE EVENT DATE: 20180506
